FAERS Safety Report 11376810 (Version 1)
Quarter: 2015Q3

REPORT INFORMATION
  Report Type: Spontaneous
  Country: US (occurrence: US)
  Receive Date: 20150813
  Receipt Date: 20150813
  Transmission Date: 20151125
  Serious: No
  Sender: FDA-Public Use
  Company Number: GXBR2015US000680

PATIENT
  Sex: Male
  Weight: 79.37 kg

DRUGS (2)
  1. HYDROCORTISONE. [Suspect]
     Active Substance: HYDROCORTISONE
     Indication: DERMATITIS
     Dosage: 1 DF, QD
     Route: 061
     Dates: start: 20141231, end: 20150102
  2. CICLOPIROX. [Suspect]
     Active Substance: CICLOPIROX
     Indication: SEBORRHOEIC DERMATITIS
     Dosage: 1 DF, BID
     Route: 061
     Dates: start: 20141231

REACTIONS (3)
  - Application site inflammation [Recovered/Resolved]
  - Application site erythema [Recovered/Resolved]
  - Condition aggravated [Recovered/Resolved]
